FAERS Safety Report 20569797 (Version 2)
Quarter: 2022Q2

REPORT INFORMATION
  Report Type: Report from Study
  Country: US (occurrence: None)
  Receive Date: 20220309
  Receipt Date: 20220401
  Transmission Date: 20220721
  Serious: Yes (Hospitalization, Disabling)
  Sender: FDA-Public Use
  Company Number: US-ROCHE-3018096

PATIENT
  Age: 78 Year
  Sex: Male
  Weight: 78.74 kg

DRUGS (17)
  1. ATEZOLIZUMAB [Suspect]
     Active Substance: ATEZOLIZUMAB
     Indication: Prostate cancer metastatic
     Dosage: ON 13/JAN/2022 LAST DOSE PRIOR TO AE WAS 1200 MG AND LAST DOSE PRIOR TO SAE WAS 2000 MG OF ATEZOLIZU
     Route: 041
     Dates: start: 20211021
  2. CAPECITABINE [Suspect]
     Active Substance: CAPECITABINE
     Indication: Prostate cancer metastatic
     Dosage: ON 05/JAN/2022 MOST RECENT DOSE OF CAPECITABEN 4000 MG ADMINISTERED PRIOR TO SAE AND DOSE LAST STUDY
     Route: 048
     Dates: start: 20211021
  3. ATORVASTATIN [Concomitant]
     Active Substance: ATORVASTATIN
     Route: 048
  4. ACETAMINOPHEN\HYDROCODONE [Concomitant]
     Active Substance: ACETAMINOPHEN\HYDROCODONE
     Indication: Pain
     Route: 048
     Dates: start: 202108
  5. AMLODIPINE [Concomitant]
     Active Substance: AMLODIPINE BESYLATE
     Indication: Hypertension
     Route: 048
  6. LISINOPRIL [Concomitant]
     Active Substance: LISINOPRIL
     Indication: Hypertension
     Route: 048
  7. TAMSULOSIN [Concomitant]
     Active Substance: TAMSULOSIN
     Route: 048
  8. ELIQUIS [Concomitant]
     Active Substance: APIXABAN
     Indication: Cerebrovascular accident
     Route: 048
  9. METOPROLOL TARTRATE [Concomitant]
     Active Substance: METOPROLOL TARTRATE
     Indication: Hypertension
     Route: 048
     Dates: start: 20220215
  10. METFORMIN [Concomitant]
     Active Substance: METFORMIN HYDROCHLORIDE
     Indication: Hyperglycaemia
     Route: 048
  11. TRAMADOL [Concomitant]
     Active Substance: TRAMADOL
     Indication: Pain
     Route: 048
  12. LUPRON DEPOT [Concomitant]
     Active Substance: LEUPROLIDE ACETATE
     Route: 030
     Dates: start: 20210326
  13. PREDNISONE [Concomitant]
     Active Substance: PREDNISONE
     Indication: Fatigue
     Route: 048
     Dates: start: 20211109
  14. PROLENSA [Concomitant]
     Active Substance: BROMFENAC SODIUM
     Indication: Cataract
     Route: 047
     Dates: start: 20211208, end: 20220107
  15. INVELTYS [Concomitant]
     Active Substance: LOTEPREDNOL ETABONATE
     Indication: Cataract operation
     Route: 047
     Dates: start: 20211209, end: 20220107
  16. BACTRIM DS [Concomitant]
     Active Substance: SULFAMETHOXAZOLE\TRIMETHOPRIM
     Route: 048
     Dates: start: 20220107
  17. AZITHROMYCIN [Concomitant]
     Active Substance: AZITHROMYCIN
     Indication: Pneumonia
     Route: 042
     Dates: start: 20220215, end: 20220216

REACTIONS (2)
  - Atrial fibrillation [Recovered/Resolved]
  - Atrial fibrillation [Recovered/Resolved]

NARRATIVE: CASE EVENT DATE: 20220124
